FAERS Safety Report 5220597-1 (Version None)
Quarter: 2007Q1

REPORT INFORMATION
  Report Type: 
  Country: None (occurrence: None)
  Receive Date: 20070126
  Receipt Date: 20070112
  Transmission Date: 20070707
  Serious: Yes (Death)
  Sender: FDA-Public Use
  Company Number: US-BRISTOL-MYERS SQUIBB COMPANY-13546205

PATIENT
  Age: 73 Year
  Sex: Male

DRUGS (2)
  1. ERBITUX [Suspect]
     Indication: COLON CANCER
     Route: 042
     Dates: start: 20060928, end: 20060928
  2. IRINOTECAN [Concomitant]

REACTIONS (2)
  - NEUTROPENIA [None]
  - PNEUMONIA [None]
